FAERS Safety Report 7870203-2 (Version None)
Quarter: 2011Q4

REPORT INFORMATION
  Report Type: 
  Country: None (occurrence: None)
  Receive Date: 20111028
  Receipt Date: 20110114
  Transmission Date: 20120403
  Serious: No
  Sender: FDA-Public Use
  Company Number: US-AMGEN-USASP2011002542

PATIENT
  Age: 54 Year
  Sex: Male

DRUGS (6)
  1. ALLEGRA [Concomitant]
     Dosage: 30 MG, UNK
  2. AMLODIPINE [Concomitant]
     Dosage: 2.5 MG, UNK
  3. IBUPROFEN [Concomitant]
     Dosage: 200 MG, UNK
  4. DIAZEPAM [Concomitant]
     Dosage: 2 MG, UNK
  5. LEXAPRO [Concomitant]
     Dosage: 10 MG, UNK
  6. ENBREL [Suspect]
     Indication: PRODUCT USED FOR UNKNOWN INDICATION
     Dosage: 50 MG, 2 TIMES/WK

REACTIONS (2)
  - SINUSITIS [None]
  - PSORIASIS [None]
